FAERS Safety Report 14966803 (Version 1)
Quarter: 2018Q2

REPORT INFORMATION
  Report Type: Spontaneous
  Country: TR (occurrence: TR)
  Receive Date: 20180604
  Receipt Date: 20180604
  Transmission Date: 20180711
  Serious: Yes (Other)
  Sender: FDA-Public Use
  Company Number: TR-CHEPLA-1896210

PATIENT
  Age: 59 Year
  Sex: Female
  Weight: 93 kg

DRUGS (1)
  1. ORLISTAT. [Suspect]
     Active Substance: ORLISTAT
     Indication: OBESITY
     Route: 065

REACTIONS (1)
  - Acute kidney injury [Recovered/Resolved]
